FAERS Safety Report 19332094 (Version 2)
Quarter: 2021Q2

REPORT INFORMATION
  Report Type: Spontaneous
  Country: FR (occurrence: FR)
  Receive Date: 20210529
  Receipt Date: 20210608
  Transmission Date: 20210717
  Serious: Yes (Hospitalization)
  Sender: FDA-Public Use
  Company Number: FR-AUROBINDO-AUR-APL-2021-021638

PATIENT
  Age: 48 Year
  Sex: Female
  Weight: 54 kg

DRUGS (4)
  1. CLARITHROMYCIN ARROW FILM?COATED TABLET 500MG [Suspect]
     Active Substance: CLARITHROMYCIN
     Indication: HELICOBACTER INFECTION
     Dosage: 1 GRAM, ONCE A DAY (500 MG X2 / DAY)
     Route: 048
     Dates: start: 20210429, end: 20210505
  2. ESOMEPRAZOLE ALTER [Suspect]
     Active Substance: ESOMEPRAZOLE MAGNESIUM
     Indication: HELICOBACTER INFECTION
     Dosage: 40 MILLIGRAM, ONCE A DAY (20 MG MORNING AND EVENING)
     Route: 048
     Dates: start: 20210429, end: 20210505
  3. AMOXICILLIN ARROW  DISPERSIBLE TABLET 1G [Suspect]
     Active Substance: AMOXICILLIN
     Indication: HELICOBACTER INFECTION
     Dosage: 2 GRAM, ONCE A DAY (1 GR MORNING AND EVENING)
     Route: 048
     Dates: start: 20210429, end: 20210505
  4. METRONIDAZOLE BIOGARAN [Suspect]
     Active Substance: METRONIDAZOLE
     Indication: PRODUCT USED FOR UNKNOWN INDICATION
     Dosage: UNK
     Route: 048
     Dates: start: 20210429, end: 20210505

REACTIONS (1)
  - Mania [Recovered/Resolved]

NARRATIVE: CASE EVENT DATE: 20210504
